FAERS Safety Report 5779965-1 (Version None)
Quarter: 2008Q2

REPORT INFORMATION
  Report Type: 
  Country: None (occurrence: None)
  Receive Date: 20080616
  Receipt Date: 20080402
  Transmission Date: 20081010
  Serious: Yes (Other)
  Sender: FDA-Public Use
  Company Number: 08-180

PATIENT
  Age: 75 Year
  Sex: Female
  Weight: 75.7507 kg

DRUGS (10)
  1. ALEVE [Suspect]
     Indication: ARTHRALGIA
     Dosage: 220 MG, DAILY, ORAL
     Route: 048
     Dates: start: 20080301
  2. ALEVE [Suspect]
     Indication: HEADACHE
     Dosage: 220 MG, DAILY, ORAL
     Route: 048
     Dates: start: 20080301
  3. COUMADIN [Concomitant]
  4. DOXAZOSIN MESYLATE [Concomitant]
  5. LISINOPRIL [Concomitant]
  6. ATENOLOL [Concomitant]
  7. LEVOTHROID [Concomitant]
  8. DEMADEX [Concomitant]
  9. CALCIUM CITRATE [Concomitant]
  10. VITAMIN D [Concomitant]

REACTIONS (2)
  - CHEST PAIN [None]
  - COAGULOPATHY [None]
